FAERS Safety Report 23543608 (Version 1)
Quarter: 2024Q1

REPORT INFORMATION
  Report Type: Spontaneous
  Country: US (occurrence: US)
  Receive Date: 20240220
  Receipt Date: 20240220
  Transmission Date: 20240410
  Serious: No
  Sender: FDA-Public Use
  Company Number: US-BAUSCH-BL-2024-002365

PATIENT
  Age: 78 Year
  Sex: Male

DRUGS (1)
  1. EFUDEX [Suspect]
     Active Substance: FLUOROURACIL
     Indication: Skin cancer
     Dosage: TWO TO THREE TIMES DAILY
     Route: 061

REACTIONS (3)
  - Application site erythema [Recovering/Resolving]
  - Application site pain [Recovering/Resolving]
  - Skin exfoliation [Recovering/Resolving]
